FAERS Safety Report 9685817 (Version 4)
Quarter: 2013Q4

REPORT INFORMATION
  Report Type: Spontaneous
  Country: GB (occurrence: GB)
  Receive Date: 20131113
  Receipt Date: 20131226
  Transmission Date: 20140711
  Serious: Yes (Other)
  Sender: FDA-Public Use
  Company Number: GB-PFIZER INC-2013292064

PATIENT
  Age: 83 Year
  Sex: Male

DRUGS (2)
  1. LYRICA [Suspect]
     Indication: NEURALGIA
     Dosage: 50 MG
  2. LYRICA [Suspect]
     Dosage: 75 MG, 4X/DAY

REACTIONS (4)
  - Bladder cancer [Not Recovered/Not Resolved]
  - Metastases to spine [Unknown]
  - Grip strength decreased [Not Recovered/Not Resolved]
  - Sensory loss [Not Recovered/Not Resolved]
